FAERS Safety Report 5757068-X (Version None)
Quarter: 2008Q2

REPORT INFORMATION
  Report Type: 
  Country: None (occurrence: None)
  Receive Date: 20080529
  Receipt Date: 20080522
  Transmission Date: 20081010
  Serious: Yes (Other)
  Sender: FDA-Public Use
  Company Number: CHPA2008US08676

PATIENT
  Age: 72 Year
  Sex: Male

DRUGS (1)
  1. GAS-X EXTRA STRENGTH SOFTGELS (NCH)(SIMETHICONE) SOFT GELATIN CAPSULE [Suspect]
     Indication: FLATULENCE
     Dosage: 125 MG, QD, ORAL
     Route: 048
     Dates: start: 20080521

REACTIONS (1)
  - HAEMATOCHEZIA [None]
